FAERS Safety Report 21584844 (Version 2)
Quarter: 2024Q3

REPORT INFORMATION
  Report Type: Spontaneous
  Country: US (occurrence: US)
  Receive Date: 20221111
  Receipt Date: 20240901
  Transmission Date: 20241016
  Serious: Yes (Hospitalization, Other)
  Sender: BRISTOL MYERS SQUIBB
  Company Number: US-BRISTOL-MYERS SQUIBB COMPANY-2022-133987

PATIENT
  Age: 81 Year
  Sex: Male
  Weight: 69.4 kg

DRUGS (2)
  1. REVLIMID [Suspect]
     Active Substance: LENALIDOMIDE
     Indication: Plasma cell myeloma
     Route: 048
     Dates: start: 20190801
  2. REVLIMID [Suspect]
     Active Substance: LENALIDOMIDE
     Dosage: 1 CAPSULE EVERY OTHER DAY FOR 21 DAYS, THEN OFF 7 DAYS
     Route: 048
     Dates: start: 20190801

REACTIONS (6)
  - Bone disorder [Recovering/Resolving]
  - Fatigue [Not Recovered/Not Resolved]
  - Asthenia [Not Recovered/Not Resolved]
  - Blood glucose increased [Unknown]
  - Treatment noncompliance [Not Recovered/Not Resolved]
  - Limb injury [Recovering/Resolving]
